APPROVED DRUG PRODUCT: CYANOCOBALAMIN
Active Ingredient: CYANOCOBALAMIN
Strength: 0.5MG/SPRAY
Dosage Form/Route: SPRAY, METERED;NASAL
Application: A210629 | Product #001 | TE Code: AB
Applicant: LUPIN INC
Approved: Jun 30, 2023 | RLD: No | RS: No | Type: RX